FAERS Safety Report 7911007-1 (Version None)
Quarter: 2011Q4

REPORT INFORMATION
  Report Type: 
  Country: None (occurrence: None)
  Receive Date: 20111114
  Receipt Date: 20111108
  Transmission Date: 20120403
  Serious: No
  Sender: FDA-Public Use
  Company Number: US-BIOGENIDEC-2011BI042702

PATIENT
  Age: 57 Year
  Sex: Male

DRUGS (1)
  1. TYSABRI [Suspect]
     Indication: MULTIPLE SCLEROSIS
     Route: 042
     Dates: start: 20110204

REACTIONS (6)
  - DYSSTASIA [None]
  - BALANCE DISORDER [None]
  - COORDINATION ABNORMAL [None]
  - HYPOTONIA [None]
  - BLOOD PRESSURE INCREASED [None]
  - GENERAL PHYSICAL HEALTH DETERIORATION [None]
